FAERS Safety Report 6462428-8 (Version None)
Quarter: 2009Q4

REPORT INFORMATION
  Report Type: 
  Country: None (occurrence: None)
  Receive Date: 20091130
  Receipt Date: 20091118
  Transmission Date: 20100525
  Serious: Yes (Other)
  Sender: FDA-Public Use
  Company Number: DE-PFIZER INC-2009290271

PATIENT
  Age: 60 Year
  Sex: Female
  Weight: 65 kg

DRUGS (3)
  1. LYRICA [Suspect]
     Indication: NEURALGIA
     Dosage: 75 MG, 2X/DAY
     Route: 048
     Dates: start: 20091021, end: 20091029
  2. LYRICA [Suspect]
     Dosage: 75 MG, 1X/DAY
     Route: 048
     Dates: start: 20091019, end: 20091020
  3. KELTICAN N [Concomitant]
     Dosage: UNK

REACTIONS (6)
  - ASTHENIA [None]
  - HEADACHE [None]
  - LIVER FUNCTION TEST ABNORMAL [None]
  - NIGHT SWEATS [None]
  - NIGHTMARE [None]
  - SOMNOLENCE [None]
